FAERS Safety Report 19755488 (Version 3)
Quarter: 2021Q3

REPORT INFORMATION
  Report Type: Spontaneous
  Country: CN (occurrence: CN)
  Receive Date: 20210827
  Receipt Date: 20210907
  Transmission Date: 20211014
  Serious: Yes (Death, Life-Threatening, Hospitalization, Other)
  Sender: FDA-Public Use
  Company Number: NVSC2021CN187565

PATIENT
  Age: 69 Year
  Sex: Female

DRUGS (2)
  1. MEKINIST [Suspect]
     Active Substance: TRAMETINIB DIMETHYL SULFOXIDE
     Indication: THYROID CANCER METASTATIC
     Dosage: 2 MG
     Route: 048
  2. TAFINLAR [Suspect]
     Active Substance: DABRAFENIB MESYLATE
     Indication: THYROID CANCER METASTATIC
     Dosage: 150 MG
     Route: 048

REACTIONS (17)
  - Gastrointestinal haemorrhage [Unknown]
  - Thyroid mass [Unknown]
  - Emphysema [Unknown]
  - Death [Fatal]
  - Thyroid fibrosis [Unknown]
  - Haemoptysis [Unknown]
  - Vomiting [Unknown]
  - Bone density abnormal [Unknown]
  - Oral disorder [Unknown]
  - Haematemesis [Unknown]
  - Aortic arteriosclerosis [Unknown]
  - Splenic calcification [Unknown]
  - Thyroid calcification [Unknown]
  - Hypertrophy [Unknown]
  - Pulmonary oedema [Unknown]
  - Goitre [Unknown]
  - Adrenal calcification [Unknown]

NARRATIVE: CASE EVENT DATE: 20210816
